FAERS Safety Report 23348664 (Version 1)
Quarter: 2023Q4

REPORT INFORMATION
  Report Type: Spontaneous
  Country: CN (occurrence: CN)
  Receive Date: 20231229
  Receipt Date: 20231229
  Transmission Date: 20240110
  Serious: Yes (Other)
  Sender: FDA-Public Use
  Company Number: CN-SERVIER-S23014349

PATIENT

DRUGS (4)
  1. IVABRADINE [Suspect]
     Active Substance: IVABRADINE
     Indication: Cardiac failure
     Dosage: 1 DF, BID
     Route: 048
  2. FUROSEMIDE [Suspect]
     Active Substance: FUROSEMIDE
     Indication: Cardiac failure
     Dosage: 1-2  TABLETS ONCE DAILY. IF THE CONDITION REQUIRES, 1-2 ADDITIONAL TABLETS CAN BE ADDED AT 6-8 HOURS
     Route: 048
  3. CAPTOPRIL [Suspect]
     Active Substance: CAPTOPRIL
     Indication: Cardiac failure
     Dosage: 1/3 TABLETS WERE  TAKEN ORALLY FOR THE FIRST TIME, 2-3 TIMES DAILY, WHICH COULD BE GRADUALLY INCREAS
     Route: 048
  4. DIGOXIN [Suspect]
     Active Substance: DIGOXIN
     Indication: Cardiac failure
     Dosage: 1/2 TABLETS-2 TABLETS ONCE DAILY. RAPID LOADING (1 TABLET EVERY 6-8 HOURS, TOTAL DOSE OF 3-5 TABLETS
     Route: 048

REACTIONS (4)
  - Cardiac failure [Unknown]
  - Bradycardia [Unknown]
  - Ventricular extrasystoles [Unknown]
  - Ocular discomfort [Unknown]
